FAERS Safety Report 8922265 (Version 2)
Quarter: 2012Q4

REPORT INFORMATION
  Report Type: 
  Country: AU (occurrence: AU)
  Receive Date: 20121123
  Receipt Date: 20121218
  Transmission Date: 20130627
  Serious: Yes (Death, Life-Threatening)
  Sender: FDA-Public Use
  Company Number: AU-B.I. PHARMACEUTICALS,INC./RIDGEFIELD-2012-AU-01905AU

PATIENT
  Age: 89 Year
  Sex: Male

DRUGS (9)
  1. PRADAXA [Suspect]
     Indication: CEREBROVASCULAR ACCIDENT PROPHYLAXIS
     Dosage: 220 mg
     Dates: start: 20110921, end: 20120430
  2. PRADAXA [Suspect]
     Indication: ATRIAL FIBRILLATION
  3. OXAZEPAM [Concomitant]
     Dates: start: 2010
  4. AMLODIPINE [Concomitant]
     Dates: start: 20120416, end: 20120430
  5. LEXAPRO [Concomitant]
     Dosage: 15 mg
     Dates: start: 201204
  6. MIRTAZAPINE [Concomitant]
     Dates: start: 201204
  7. METOPROLOL [Concomitant]
     Dosage: 50 mg
     Dates: start: 201204
  8. IRBESARTAN [Concomitant]
     Dosage: 300 mg
     Dates: start: 2003
  9. OXYCONTIN [Concomitant]
     Dosage: 10 mg
     Dates: start: 201205

REACTIONS (5)
  - Myocardial infarction [Fatal]
  - Pulmonary oedema [Fatal]
  - Fall [Recovered/Resolved]
  - Head injury [Recovered/Resolved]
  - Subdural haematoma [Recovered/Resolved]
